FAERS Safety Report 7953249-5 (Version None)
Quarter: 2011Q4

REPORT INFORMATION
  Report Type: 
  Country: None (occurrence: None)
  Receive Date: 20111201
  Receipt Date: 20111125
  Transmission Date: 20120403
  Serious: Yes (Hospitalization)
  Sender: FDA-Public Use
  Company Number: JP-ROCHE-1013516

PATIENT
  Sex: Male

DRUGS (25)
  1. PREDNISOLONE [Concomitant]
     Route: 048
     Dates: start: 20110601, end: 20110603
  2. PREDNISOLONE [Concomitant]
     Route: 048
     Dates: start: 20110604, end: 20110608
  3. NEORAL [Concomitant]
     Route: 048
     Dates: start: 20110531, end: 20110612
  4. PREDNISOLONE [Concomitant]
     Route: 048
     Dates: start: 20110805, end: 20110907
  5. NEORAL [Concomitant]
     Route: 048
     Dates: start: 20110706
  6. MAGNESIUM OXIDE [Concomitant]
     Indication: CONSTIPATION
     Route: 048
     Dates: start: 20110703, end: 20110805
  7. PREDNISOLONE [Concomitant]
     Route: 048
     Dates: start: 20110513, end: 20110517
  8. PREDNISOLONE [Concomitant]
     Route: 048
     Dates: start: 20110521, end: 20110524
  9. PREDNISOLONE [Concomitant]
     Route: 048
     Dates: start: 20110701, end: 20110706
  10. PREDNISOLONE [Concomitant]
     Route: 048
     Dates: start: 20110707, end: 20110713
  11. NEORAL [Concomitant]
     Indication: JUVENILE ARTHRITIS
     Route: 048
     Dates: start: 20110528, end: 20110530
  12. PREDNISOLONE [Concomitant]
     Route: 048
     Dates: start: 20110528, end: 20110531
  13. PREDNISOLONE [Concomitant]
     Route: 048
     Dates: start: 20110625, end: 20110630
  14. FAMOTIDINE [Concomitant]
     Route: 048
     Dates: start: 20110518, end: 20111005
  15. ACTEMRA [Suspect]
     Indication: JUVENILE ARTHRITIS
     Route: 041
     Dates: start: 20110707, end: 20110804
  16. PREDNISOLONE [Concomitant]
     Dosage: 4MG AND 3 ALTERNATE MG
     Route: 048
     Dates: start: 20110502, end: 20110501
  17. PREDNISOLONE [Concomitant]
     Route: 048
     Dates: start: 20110512, end: 20110512
  18. PREDNISOLONE [Concomitant]
     Route: 048
     Dates: start: 20110609, end: 20110617
  19. NEORAL [Concomitant]
     Route: 048
     Dates: start: 20110617, end: 20110705
  20. PRAVASTATIN SODIUM [Concomitant]
     Route: 048
  21. ACTEMRA [Suspect]
     Route: 041
     Dates: start: 20110826, end: 20110826
  22. PREDNISOLONE [Concomitant]
     Indication: JUVENILE ARTHRITIS
     Route: 048
     Dates: end: 20110501
  23. PREDNISOLONE [Concomitant]
     Route: 048
     Dates: start: 20110618, end: 20110624
  24. NEORAL [Concomitant]
     Route: 048
     Dates: start: 20110613, end: 20110616
  25. PREDNISOLONE [Concomitant]
     Route: 048
     Dates: start: 20110714, end: 20110804

REACTIONS (6)
  - BLOOD PRESSURE DECREASED [None]
  - URTICARIA [None]
  - SWELLING FACE [None]
  - VOMITING [None]
  - HEADACHE [None]
  - NASOPHARYNGITIS [None]
